FAERS Safety Report 17598140 (Version 1)
Quarter: 2020Q1

REPORT INFORMATION
  Report Type: Spontaneous
  Country: US (occurrence: US)
  Receive Date: 20200326
  Receipt Date: 20200326
  Transmission Date: 20200409
  Serious: No
  Sender: FDA-Public Use
  Company Number: None

PATIENT
  Age: 49 Year
  Sex: Female

DRUGS (17)
  1. HUMIRA [Suspect]
     Active Substance: ADALIMUMAB
     Indication: PSORIASIS
     Dosage: ?          OTHER FREQUENCY:EVERY 2 WEEKS;?
     Route: 058
     Dates: start: 20180314
  2. GABAPENTIN. [Concomitant]
     Active Substance: GABAPENTIN
  3. HALOBETASOL [Concomitant]
     Active Substance: HALOBETASOL PROPIONATE
  4. DOXYCYCL HYC [Concomitant]
  5. FOLIC ACID. [Concomitant]
     Active Substance: FOLIC ACID
  6. LAMOTRIGINE. [Concomitant]
     Active Substance: LAMOTRIGINE
  7. FEROSUL [Concomitant]
     Active Substance: FERROUS SULFATE
  8. VENLAFAXINE [Concomitant]
     Active Substance: VENLAFAXINE HYDROCHLORIDE
  9. CIPROFLOXACIN. [Concomitant]
     Active Substance: CIPROFLOXACIN
  10. OXYCODONE AND ACETAMINOPHEN [Concomitant]
     Active Substance: ACETAMINOPHEN\OXYCODONE HYDROCHLORIDE
  11. QUETIAPINE. [Concomitant]
     Active Substance: QUETIAPINE
  12. APAP/CODEINE [Concomitant]
     Active Substance: ACETAMINOPHEN\CODEINE PHOSPHATE
  13. FLUCONAZOLE. [Concomitant]
     Active Substance: FLUCONAZOLE
  14. HYDROCO/APAP [Concomitant]
     Active Substance: ACETAMINOPHEN\HYDROCODONE
  15. HYDROMORPHON [Concomitant]
     Active Substance: HYDROMORPHONE
  16. LEVOFLOXACIN. [Concomitant]
     Active Substance: LEVOFLOXACIN
  17. DOXYCYC MONO [Concomitant]
     Active Substance: DOXYCYCLINE

REACTIONS (3)
  - Surgery [None]
  - Therapy cessation [None]
  - Infection [None]

NARRATIVE: CASE EVENT DATE: 20200101
